FAERS Safety Report 23924297 (Version 3)
Quarter: 2024Q4

REPORT INFORMATION
  Report Type: Report from Study
  Country: US (occurrence: US)
  Receive Date: 20240531
  Receipt Date: 20241216
  Transmission Date: 20250115
  Serious: No
  Sender: ROCHE
  Company Number: US-ROCHE-3573595

PATIENT
  Age: 53 Year
  Sex: Male
  Weight: 88.45 kg

DRUGS (12)
  1. OCREVUS [Suspect]
     Active Substance: OCRELIZUMAB
     Indication: Primary progressive multiple sclerosis
     Route: 065
     Dates: start: 201801
  2. OCREVUS [Suspect]
     Active Substance: OCRELIZUMAB
     Route: 065
     Dates: start: 201801
  3. LIORESAL [Concomitant]
     Active Substance: BACLOFEN
  4. CALCIUM CITRATE [Concomitant]
     Active Substance: CALCIUM CITRATE
  5. VITAMIN D3 [Concomitant]
     Active Substance: CHOLECALCIFEROL
  6. FISH OIL [Concomitant]
     Active Substance: FISH OIL
  7. VIAGRA [Concomitant]
     Active Substance: SILDENAFIL CITRATE
  8. BACLOFEN [Concomitant]
     Active Substance: BACLOFEN
  9. AVONEX [Concomitant]
     Active Substance: INTERFERON BETA-1A
  10. AMPYRA [Concomitant]
     Active Substance: DALFAMPRIDINE
  11. BOTOX [Concomitant]
     Active Substance: ONABOTULINUMTOXINA
  12. TIZANIDINE [Concomitant]
     Active Substance: TIZANIDINE

REACTIONS (4)
  - Musculoskeletal stiffness [Not Recovered/Not Resolved]
  - COVID-19 [Unknown]
  - Amnesia [Unknown]
  - Off label use [Unknown]

NARRATIVE: CASE EVENT DATE: 20200101
